FAERS Safety Report 8341706-1 (Version None)
Quarter: 2012Q2

REPORT INFORMATION
  Report Type: 
  Country: None (occurrence: None)
  Receive Date: 20120507
  Receipt Date: 20120426
  Transmission Date: 20120825
  Serious: Yes (Other)
  Sender: FDA-Public Use
  Company Number: PHHY2012FR028036

PATIENT
  Sex: Female
  Weight: 60 kg

DRUGS (7)
  1. ALDACTONE [Concomitant]
     Indication: HYPERTENSION
  2. ATORVASTATIN [Concomitant]
  3. RASILEZ HCT [Suspect]
     Indication: HYPERTENSION
     Dosage: 1 DF, QD
     Route: 048
     Dates: start: 20101201, end: 20120418
  4. HYPERIUM [Concomitant]
     Indication: HYPERTENSION
     Dosage: 2 DF, DAILY
  5. SECTRAL [Concomitant]
     Indication: HYPERTENSION
  6. DILTIAZEM HCL [Concomitant]
     Indication: HYPERTENSION
     Dosage: 1 DF, DAILY
  7. COAPROVEL [Concomitant]
     Dates: start: 20120418

REACTIONS (3)
  - HYPERALDOSTERONISM [None]
  - RENIN INCREASED [None]
  - RENAL ARTERY STENOSIS [None]
